FAERS Safety Report 18405308 (Version 1)
Quarter: 2020Q4

REPORT INFORMATION
  Report Type: Spontaneous
  Country: US (occurrence: US)
  Receive Date: 20201020
  Receipt Date: 20201020
  Transmission Date: 20210114
  Serious: Yes (Other)
  Sender: FDA-Public Use
  Company Number: None

PATIENT
  Sex: Female

DRUGS (1)
  1. METOPROLOL SUCCINATE 100MG ER [Suspect]
     Active Substance: METOPROLOL SUCCINATE

REACTIONS (2)
  - Arrhythmia [None]
  - Supraventricular tachycardia [None]
